FAERS Safety Report 11847695 (Version 1)
Quarter: 2015Q4

REPORT INFORMATION
  Report Type: Spontaneous
  Country: US (occurrence: US)
  Receive Date: 20151217
  Receipt Date: 20151217
  Transmission Date: 20160305
  Serious: Yes (Other)
  Sender: FDA-Public Use
  Company Number: US-THE MENTHOLATUM COMPANY-1045624

PATIENT
  Age: 25 Year
  Sex: Male
  Weight: 82.73 kg

DRUGS (1)
  1. OXY DAILY DEFENSE CLEANSING PADS [Suspect]
     Active Substance: SALICYLIC ACID
     Indication: ACNE
     Route: 061
     Dates: start: 20151101, end: 20151101

REACTIONS (2)
  - Scar [Recovering/Resolving]
  - Thermal burn [Recovering/Resolving]

NARRATIVE: CASE EVENT DATE: 20151101
